FAERS Safety Report 25936749 (Version 1)
Quarter: 2025Q4

REPORT INFORMATION
  Report Type: Spontaneous
  Country: EU (occurrence: EU)
  Receive Date: 20251017
  Receipt Date: 20251017
  Transmission Date: 20260117
  Serious: Yes (Other)
  Sender: AMERICAN REGENT
  Company Number: EU-AMERICAN REGENT INC-2025003774

PATIENT
  Age: 69 Year
  Sex: Male

DRUGS (2)
  1. FERINJECT [Suspect]
     Active Substance: FERRIC CARBOXYMALTOSE
     Indication: Iron deficiency
     Dosage: 1 VIAL IN 250 CC OF SALINE SOLUTION
     Route: 042
     Dates: start: 20250925, end: 20250925
  2. SODIUM CHLORIDE [Concomitant]
     Active Substance: SODIUM CHLORIDE
     Indication: Product used for unknown indication
     Dosage: 250 CC
     Route: 042
     Dates: start: 20250925, end: 20250925

REACTIONS (4)
  - Dermatitis exfoliative generalised [Recovered/Resolved]
  - Hyperhidrosis [Recovered/Resolved]
  - Hypopnoea [Recovered/Resolved]
  - Headache [Recovered/Resolved]

NARRATIVE: CASE EVENT DATE: 20250925
